FAERS Safety Report 8202349-3 (Version None)
Quarter: 2012Q1

REPORT INFORMATION
  Report Type: 
  Country: None (occurrence: None)
  Receive Date: 20120312
  Receipt Date: 20110503
  Transmission Date: 20120608
  Serious: No
  Sender: FDA-Public Use
  Company Number: US-ABBOTT-11P-163-0723574-00

PATIENT
  Age: 36 Year
  Sex: Male
  Weight: 97.156 kg

DRUGS (2)
  1. ZYPREXA [Concomitant]
     Indication: PRODUCT USED FOR UNKNOWN INDICATION
  2. DEPAKOTE [Suspect]
     Indication: ANXIETY DISORDER
     Dosage: 125 MG DAILY
     Dates: start: 20110301

REACTIONS (1)
  - SOMNOLENCE [None]
